FAERS Safety Report 9423178 (Version 1)
Quarter: 2013Q3

REPORT INFORMATION
  Report Type: Report from Study
  Country: CA (occurrence: CA)
  Receive Date: 20130726
  Receipt Date: 20130726
  Transmission Date: 20140515
  Serious: Yes (Death)
  Sender: FDA-Public Use
  Company Number: PHHY2013CA071670

PATIENT
  Age: 78 Year
  Sex: Female

DRUGS (1)
  1. SANDOSTATIN LAR [Suspect]
     Indication: OVARIAN CANCER
     Dosage: 30 MG, ONCE A MONTH
     Route: 030
     Dates: start: 20130426, end: 20130627

REACTIONS (5)
  - Death [Fatal]
  - Blood pressure decreased [Unknown]
  - Heart rate increased [Unknown]
  - Sleep disorder [Unknown]
  - Fatigue [Unknown]
